FAERS Safety Report 9628293 (Version 2)
Quarter: 2013Q4

REPORT INFORMATION
  Report Type: Spontaneous
  Country: CH (occurrence: CH)
  Receive Date: 20131017
  Receipt Date: 20131017
  Transmission Date: 20140711
  Serious: Yes (Other)
  Sender: FDA-Public Use
  Company Number: CH-AMGEN-CHESP2013054294

PATIENT
  Age: 75 Year
  Sex: Male
  Weight: 88 kg

DRUGS (4)
  1. ENBREL [Suspect]
     Indication: RHEUMATOID ARTHRITIS
     Dosage: 50 MG, ALL TWO WEEKS
     Route: 058
     Dates: start: 20080707
  2. ATACAND PLUS [Concomitant]
     Indication: HYPERTENSION
     Dosage: 16 MG, QD (ONCE DAILY)
     Route: 048
     Dates: start: 2004
  3. PRADIF [Concomitant]
     Dosage: UNK
  4. CALPEROS                           /00944201/ [Concomitant]
     Indication: OSTEOPENIA
     Dosage: 500/400 IE, ONCE DAILY
     Route: 048
     Dates: start: 20050101

REACTIONS (3)
  - Dermatosis [Not Recovered/Not Resolved]
  - Blister [Not Recovered/Not Resolved]
  - Herpes simplex [Not Recovered/Not Resolved]
